FAERS Safety Report 16934139 (Version 1)
Quarter: 2019Q4

REPORT INFORMATION
  Report Type: Spontaneous
  Country: DK (occurrence: DK)
  Receive Date: 20191018
  Receipt Date: 20191018
  Transmission Date: 20200122
  Serious: Yes (Hospitalization)
  Sender: FDA-Public Use
  Company Number: DK-ACCORD-157967

PATIENT
  Age: 74 Year
  Sex: Female

DRUGS (4)
  1. PANTOPRAZOLE TEVA [Concomitant]
     Active Substance: PANTOPRAZOLE SODIUM
     Indication: GASTROOESOPHAGEAL REFLUX DISEASE
     Dosage: STRENGTH: 40 MG.
     Route: 048
     Dates: start: 20190620
  2. AKYNZEO [Interacting]
     Active Substance: NETUPITANT\PALONOSETRON HYDROCHLORIDE
     Indication: PROPHYLAXIS OF NAUSEA AND VOMITING
     Dosage: STRENGTH: 300 MG/0.5 MG.DOSE: 1 CAPSULE 1 HOUR BEFORE CARBOPLATIN AND NAVELBINE TREATMENT.
     Route: 048
     Dates: start: 20190819
  3. CARBOPLATIN ACCORD [Suspect]
     Active Substance: CARBOPLATIN
     Indication: NON-SMALL CELL LUNG CANCER
     Dosage: DOSAGE: 500 MG X 1 STRENGTH: 10 MG/ML.
     Route: 042
     Dates: start: 20190819
  4. NAVELBINE [Interacting]
     Active Substance: VINORELBINE TARTRATE
     Indication: NON-SMALL CELL LUNG CANCER
     Dosage: STYRKE: 20 MG OG 80 MG. ?DOSIS: 80 MG DAG 1 OG 100 MG DAG 8.
     Route: 048
     Dates: start: 20190819

REACTIONS (5)
  - Pancytopenia [Not Recovered/Not Resolved]
  - Malaise [Unknown]
  - C-reactive protein increased [Recovering/Resolving]
  - Hyponatraemia [Recovering/Resolving]
  - Infection [Recovering/Resolving]

NARRATIVE: CASE EVENT DATE: 201909
